FAERS Safety Report 13929896 (Version 2)
Quarter: 2017Q4

REPORT INFORMATION
  Report Type: Spontaneous
  Country: US (occurrence: US)
  Receive Date: 20170901
  Receipt Date: 20171116
  Transmission Date: 20180320
  Serious: No
  Sender: FDA-Public Use
  Company Number: US-ASTRAZENECA-2017SE87816

PATIENT
  Sex: Female

DRUGS (6)
  1. SYMBICORT [Suspect]
     Active Substance: BUDESONIDE\FORMOTEROL FUMARATE DIHYDRATE
     Dosage: UNKNOWN UNKNOWN
     Route: 055
  2. SYMBICORT [Suspect]
     Active Substance: BUDESONIDE\FORMOTEROL FUMARATE DIHYDRATE
     Dosage: UNKNOWN UNKNOWN
     Route: 055
     Dates: end: 20170812
  3. RADIATION TREATMENT [Concomitant]
     Active Substance: RADIATION THERAPY
  4. BEVESPI AEROSPHERE [Suspect]
     Active Substance: FORMOTEROL FUMARATE\GLYCOPYRROLATE
     Route: 055
     Dates: start: 20170729
  5. ADVAIR HFA [Concomitant]
     Active Substance: FLUTICASONE PROPIONATE\SALMETEROL XINAFOATE
     Dosage: UNKNOWN
     Route: 065
  6. ADVAIR HFA [Concomitant]
     Active Substance: FLUTICASONE PROPIONATE\SALMETEROL XINAFOATE
     Dosage: UNKNOWN
     Route: 065

REACTIONS (16)
  - Headache [Unknown]
  - Wrist fracture [Unknown]
  - Back pain [Unknown]
  - Cardiac disorder [Unknown]
  - Gingival pain [Unknown]
  - Dysgraphia [Unknown]
  - Dizziness [Unknown]
  - Fear of falling [Unknown]
  - Chronic obstructive pulmonary disease [Unknown]
  - Renal disorder [Unknown]
  - Emphysema [Unknown]
  - Dyspnoea [Unknown]
  - Vision blurred [Unknown]
  - Anger [Unknown]
  - Drug dose omission [Unknown]
  - Intentional product misuse [Unknown]

NARRATIVE: CASE EVENT DATE: 201708
